FAERS Safety Report 19785709 (Version 1)
Quarter: 2021Q3

REPORT INFORMATION
  Report Type: Spontaneous
  Country: GB (occurrence: GB)
  Receive Date: 20210903
  Receipt Date: 20210903
  Transmission Date: 20211014
  Serious: Yes (Hospitalization, Other)
  Sender: FDA-Public Use
  Company Number: GB-ACCORD-236952

PATIENT
  Age: 85 Year
  Sex: Male

DRUGS (4)
  1. PRAVASTATIN. [Concomitant]
     Active Substance: PRAVASTATIN
     Indication: ILL-DEFINED DISORDER
  2. FINASTERIDE. [Suspect]
     Active Substance: FINASTERIDE
     Indication: HALLUCINATION, VISUAL
     Dosage: 5 MG ONCE DAILY
     Route: 048
     Dates: start: 20210802
  3. CLOPIDOGREL [Concomitant]
     Active Substance: CLOPIDOGREL BISULFATE
     Indication: ILL-DEFINED DISORDER
  4. PERINDOPRIL [Concomitant]
     Active Substance: PERINDOPRIL
     Indication: ILL-DEFINED DISORDER

REACTIONS (3)
  - Hallucination, visual [Recovering/Resolving]
  - Off label use [Unknown]
  - Condition aggravated [Unknown]

NARRATIVE: CASE EVENT DATE: 20210802
